FAERS Safety Report 21891916 (Version 1)
Quarter: 2023Q1

REPORT INFORMATION
  Report Type: Spontaneous
  Country: JP (occurrence: JP)
  Receive Date: 20230120
  Receipt Date: 20230120
  Transmission Date: 20230417
  Serious: Yes (Hospitalization, Other)
  Sender: FDA-Public Use
  Company Number: JP-DSJP-DSJ-2023-102090

PATIENT
  Age: 57 Year
  Sex: Male
  Weight: 65.4 kg

DRUGS (1)
  1. EDOXABAN TOSYLATE [Suspect]
     Active Substance: EDOXABAN TOSYLATE
     Indication: Thrombosis prophylaxis
     Dosage: UNK
     Route: 065

REACTIONS (6)
  - Serous retinal detachment [Recovered/Resolved]
  - Flat anterior chamber of eye [Recovering/Resolving]
  - Eye oedema [Unknown]
  - Pleural effusion [Unknown]
  - Renal impairment [Recovering/Resolving]
  - Blood pressure increased [Unknown]
